FAERS Safety Report 9268059 (Version 5)
Quarter: 2015Q3

REPORT INFORMATION
  Report Type: Report from Study
  Country: US (occurrence: US)
  Receive Date: 20130502
  Receipt Date: 20150818
  Transmission Date: 20151125
  Serious: Yes (Hospitalization, Other)
  Sender: FDA-Public Use
  Company Number: US-ALEXION-A201201530

PATIENT

DRUGS (1)
  1. SOLIRIS [Suspect]
     Active Substance: ECULIZUMAB
     Indication: HAEMOLYTIC URAEMIC SYNDROME
     Dosage: 1200 MG, Q2W
     Route: 042
     Dates: start: 20111103

REACTIONS (9)
  - Unevaluable event [Unknown]
  - Haemodialysis [Not Recovered/Not Resolved]
  - Anaemia [Unknown]
  - Fall [Unknown]
  - Catheter removal [Unknown]
  - Intestinal obstruction [Unknown]
  - Cholecystectomy [Unknown]
  - Appendicectomy [Unknown]
  - Asthenia [Unknown]
